FAERS Safety Report 21143151 (Version 2)
Quarter: 2022Q3

REPORT INFORMATION
  Report Type: Spontaneous
  Country: CA (occurrence: CA)
  Receive Date: 20220728
  Receipt Date: 20220810
  Transmission Date: 20221027
  Serious: Yes (Life-Threatening, Hospitalization)
  Sender: FDA-Public Use
  Company Number: CA-TEVA-2022-CA-2057855

PATIENT
  Age: 63 Year
  Sex: Male

DRUGS (12)
  1. METHYLPREDNISOLONE [Suspect]
     Active Substance: METHYLPREDNISOLONE
     Indication: Immunosuppressant drug therapy
     Route: 065
  2. METHYLPREDNISOLONE [Suspect]
     Active Substance: METHYLPREDNISOLONE
     Dosage: STEROID BOLUS FOR PRESUMED REJECTION (10 MG/KG OF METHYLPREDNISONE FOR 3 D)
     Route: 050
  3. MYCOPHENOLATE MOFETIL [Suspect]
     Active Substance: MYCOPHENOLATE MOFETIL
     Indication: Immunosuppressant drug therapy
     Route: 065
  4. BASILIXIMAB [Suspect]
     Active Substance: BASILIXIMAB
     Indication: Immunosuppressant drug therapy
     Route: 065
  5. TACROLIMUS [Suspect]
     Active Substance: TACROLIMUS
     Indication: Immunosuppressant drug therapy
     Route: 065
  6. PIPERACILLIN AND TAZOBACTAM [Concomitant]
     Active Substance: PIPERACILLIN SODIUM\TAZOBACTAM SODIUM
     Indication: Antibiotic therapy
     Route: 065
  7. VALGANCICLOVIR [Concomitant]
     Active Substance: VALGANCICLOVIR
     Indication: Prophylaxis
     Route: 065
  8. SULFAMETHOXAZOLE\TRIMETHOPRIM [Concomitant]
     Active Substance: SULFAMETHOXAZOLE\TRIMETHOPRIM
     Indication: Prophylaxis
     Route: 065
  9. CEFAZOLIN [Concomitant]
     Active Substance: CEFAZOLIN
     Indication: Antibiotic therapy
     Route: 065
  10. MEROPENEM [Concomitant]
     Active Substance: MEROPENEM
     Indication: Escherichia bacteraemia
     Route: 042
  11. MEROPENEM [Concomitant]
     Active Substance: MEROPENEM
     Indication: Empyema
  12. MEROPENEM [Concomitant]
     Active Substance: MEROPENEM
     Indication: Pathogen resistance

REACTIONS (9)
  - Strongyloidiasis [Unknown]
  - Septic shock [Unknown]
  - Atrial fibrillation [Unknown]
  - Deep vein thrombosis [Unknown]
  - Depressed level of consciousness [Unknown]
  - Subdural haemorrhage [Unknown]
  - Haemorrhage intracranial [Unknown]
  - Subarachnoid haemorrhage [Unknown]
  - Brain herniation [Unknown]
